FAERS Safety Report 7654881-9 (Version None)
Quarter: 2011Q3

REPORT INFORMATION
  Report Type: 
  Country: None (occurrence: None)
  Receive Date: 20110803
  Receipt Date: 20110803
  Transmission Date: 20111222
  Serious: Yes (Hospitalization)
  Sender: FDA-Public Use
  Company Number: None

PATIENT
  Sex: Male
  Weight: 82.1 kg

DRUGS (2)
  1. CISPLATIN [Suspect]
     Dosage: 153 MG
     Dates: end: 20110623
  2. PEMETREXED [Suspect]
     Dosage: 1020 MG
     Dates: end: 20110623

REACTIONS (4)
  - NEUROTOXICITY [None]
  - WHITE BLOOD CELL COUNT INCREASED [None]
  - PNEUMONIA [None]
  - CHRONIC OBSTRUCTIVE PULMONARY DISEASE [None]
